FAERS Safety Report 12068545 (Version 1)
Quarter: 2016Q1

REPORT INFORMATION
  Report Type: Spontaneous
  Country: US (occurrence: US)
  Receive Date: 20160211
  Receipt Date: 20160211
  Transmission Date: 20160526
  Serious: No
  Sender: FDA-Public Use
  Company Number: US-ALLERGAN-1519708US

PATIENT
  Sex: Female

DRUGS (3)
  1. BOTOX [Suspect]
     Active Substance: ONABOTULINUMTOXINA
     Indication: BLEPHAROSPASM
     Dosage: 20 UNITS, SINGLE
     Route: 030
     Dates: start: 201410, end: 201410
  2. BOTOX [Suspect]
     Active Substance: ONABOTULINUMTOXINA
     Dosage: 20 UNITS, SINGLE
     Route: 030
     Dates: start: 201501, end: 201501
  3. BOTOX [Suspect]
     Active Substance: ONABOTULINUMTOXINA
     Dosage: 17.5 UNITS, SINGLE
     Route: 030
     Dates: start: 20150917, end: 20150917

REACTIONS (4)
  - Ocular discomfort [Recovered/Resolved]
  - Dry eye [Recovered/Resolved]
  - Visual field defect [Recovered/Resolved]
  - Eye movement disorder [Recovered/Resolved]
